FAERS Safety Report 20722228 (Version 1)
Quarter: 2022Q2

REPORT INFORMATION
  Report Type: Report from Study
  Country: US (occurrence: US)
  Receive Date: 20220418
  Receipt Date: 20220418
  Transmission Date: 20220721
  Serious: Yes (Hospitalization)
  Sender: FDA-Public Use
  Company Number: US-APELLIS-00905

PATIENT

DRUGS (9)
  1. PEGCETACOPLAN [Suspect]
     Active Substance: PEGCETACOPLAN
     Indication: Paroxysmal nocturnal haemoglobinuria
     Dosage: 1080 MG 0.5 WEEKS
     Route: 058
     Dates: start: 20210727
  2. AMLODIPINE [Concomitant]
     Active Substance: AMLODIPINE BESYLATE
     Indication: Product used for unknown indication
  3. ASPIRIN [Concomitant]
     Active Substance: ASPIRIN
     Indication: Product used for unknown indication
  4. BUPROPION [Concomitant]
     Active Substance: BUPROPION
     Indication: Product used for unknown indication
  5. CELEBREX [Concomitant]
     Active Substance: CELECOXIB
     Indication: Product used for unknown indication
  6. OXYCODONE [Concomitant]
     Active Substance: OXYCODONE
     Indication: Product used for unknown indication
  7. PENICILLIN [Concomitant]
     Active Substance: PENICILLIN
     Indication: Product used for unknown indication
  8. PREVACID [Concomitant]
     Active Substance: LANSOPRAZOLE
     Indication: Product used for unknown indication
  9. ZOFRAN [Concomitant]
     Active Substance: ONDANSETRON HYDROCHLORIDE
     Indication: Product used for unknown indication

REACTIONS (11)
  - COVID-19 [Recovered/Resolved]
  - Transfusion [Recovered/Resolved]
  - Somnolence [Unknown]
  - Product use issue [Unknown]
  - Incorrect dose administered [Recovering/Resolving]
  - Injection site extravasation [Recovered/Resolved]
  - Abdominal pain [Unknown]
  - Back pain [Unknown]
  - Fatigue [Unknown]
  - Muscular weakness [Unknown]
  - Pruritus [Unknown]

NARRATIVE: CASE EVENT DATE: 20210727
